FAERS Safety Report 16689462 (Version 4)
Quarter: 2019Q4

REPORT INFORMATION
  Report Type: Spontaneous
  Country: US (occurrence: US)
  Receive Date: 20190809
  Receipt Date: 20191202
  Transmission Date: 20200122
  Serious: No
  Sender: FDA-Public Use
  Company Number: US-PFIZER INC-2019341256

PATIENT
  Age: 69 Year
  Sex: Female

DRUGS (1)
  1. CADUET [Suspect]
     Active Substance: AMLODIPINE BESYLATE\ATORVASTATIN CALCIUM
     Indication: BLOOD PRESSURE ABNORMAL
     Dosage: UNK (STRENGTH: 5/40)

REACTIONS (2)
  - Product dispensing error [Unknown]
  - Drug ineffective [Unknown]
